FAERS Safety Report 8346619-7 (Version None)
Quarter: 2012Q2

REPORT INFORMATION
  Report Type: 
  Country: None (occurrence: None)
  Receive Date: 20120509
  Receipt Date: 20120504
  Transmission Date: 20120825
  Serious: Yes (Hospitalization)
  Sender: FDA-Public Use
  Company Number: PHHY2012MX001489

PATIENT
  Age: 78 Year
  Sex: Female

DRUGS (3)
  1. ZOLEDRONOC ACID [Suspect]
     Indication: OSTEOPOROSIS
     Dosage: 5 MG/100ML/ PER YEAR
     Route: 042
     Dates: start: 20100101
  2. CLONAZEPAM [Concomitant]
     Indication: SLEEP DISORDER
     Dosage: 1/4 OF TABLET
  3. ACETAMINOPHEN [Concomitant]
     Indication: PAIN

REACTIONS (4)
  - ABSCESS LIMB [None]
  - DRUG INEFFECTIVE [None]
  - PAIN IN EXTREMITY [None]
  - BONE PAIN [None]
